FAERS Safety Report 7789341-8 (Version None)
Quarter: 2011Q3

REPORT INFORMATION
  Report Type: 
  Country: None (occurrence: None)
  Receive Date: 20110930
  Receipt Date: 20110923
  Transmission Date: 20111222
  Serious: Yes (Hospitalization)
  Sender: FDA-Public Use
  Company Number: FR-GLAXOSMITHKLINE-B0668934B

PATIENT
  Sex: Female
  Weight: 83 kg

DRUGS (2)
  1. BEVACIZUMAB [Suspect]
     Indication: METASTATIC RENAL CELL CARCINOMA
     Dosage: 7.5MGK EVERY TWO WEEKS
     Route: 042
     Dates: start: 20100729
  2. PAZOPANIB [Suspect]
     Indication: METASTATIC RENAL CELL CARCINOMA
     Dosage: 400MG PER DAY
     Route: 048
     Dates: start: 20100715

REACTIONS (1)
  - SPINAL CORD COMPRESSION [None]
